FAERS Safety Report 9769260 (Version 3)
Quarter: 2014Q1

REPORT INFORMATION
  Report Type: Report from Study
  Country: CN (occurrence: CN)
  Receive Date: 20131218
  Receipt Date: 20140218
  Transmission Date: 20141002
  Serious: Yes (Death, Other)
  Sender: FDA-Public Use
  Company Number: CN-BAYER-2013-151390

PATIENT
  Age: 53 Year
  Sex: Male
  Weight: 84.81 kg

DRUGS (2)
  1. NEXAVAR [Suspect]
     Indication: RENAL CELL CARCINOMA
     Dosage: 400 MG, BID
     Dates: start: 20131101, end: 20131116
  2. NEXAVAR [Suspect]
     Indication: RENAL CELL CARCINOMA
     Dosage: 400 MG, BID
     Route: 048
     Dates: start: 20131119

REACTIONS (6)
  - Aspartate aminotransferase increased [None]
  - Gamma-glutamyltransferase increased [None]
  - Blood uric acid increased [None]
  - Alanine aminotransferase increased [None]
  - Hepatic function abnormal [Fatal]
  - Renal impairment [Not Recovered/Not Resolved]
